FAERS Safety Report 16478811 (Version 2)
Quarter: 2019Q3

REPORT INFORMATION
  Report Type: Spontaneous
  Country: US (occurrence: US)
  Receive Date: 20190626
  Receipt Date: 20190802
  Transmission Date: 20191004
  Serious: No
  Sender: FDA-Public Use
  Company Number: US-ALNYLAM PHARMACEUTICALS, INC.-ALN-2019-000415

PATIENT
  Sex: Female
  Weight: 67 kg

DRUGS (6)
  1. ZYRTEC [Concomitant]
     Active Substance: CETIRIZINE HYDROCHLORIDE
     Indication: PROPHYLAXIS
     Dosage: 10 MILLIGRAM
     Route: 048
     Dates: start: 20190516, end: 20190516
  2. ONPATTRO [Suspect]
     Active Substance: PATISIRAN SODIUM
     Indication: HEREDITARY NEUROPATHIC AMYLOIDOSIS
     Dosage: 20 MILLIGRAM, Q3W
     Route: 042
     Dates: start: 2018
  3. DEXAMETHASONE. [Concomitant]
     Active Substance: DEXAMETHASONE
     Dosage: 5 MILLIGRAM
     Dates: start: 20190404, end: 20190425
  4. PEPCID [Concomitant]
     Active Substance: FAMOTIDINE
     Indication: PROPHYLAXIS
     Dosage: 20 MILLIGRAM
     Route: 042
     Dates: start: 20190516, end: 20190516
  5. TYLENOL [Concomitant]
     Active Substance: ACETAMINOPHEN
     Indication: PROPHYLAXIS
     Dosage: 650 MILLIGRAM
     Route: 048
     Dates: start: 20190516, end: 20190516
  6. DEXAMETHASONE. [Concomitant]
     Active Substance: DEXAMETHASONE
     Indication: PROPHYLAXIS
     Dosage: UNK MILLIGRAM
     Dates: end: 20190404

REACTIONS (7)
  - Paraesthesia [Unknown]
  - Infusion related reaction [Unknown]
  - Constipation [Unknown]
  - Drug ineffective [Unknown]
  - Nausea [Recovering/Resolving]
  - Gastrointestinal disorder [Unknown]
  - Back pain [Recovering/Resolving]
